FAERS Safety Report 5679606-8 (Version None)
Quarter: 2008Q1

REPORT INFORMATION
  Report Type: 
  Country: None (occurrence: None)
  Receive Date: 20080324
  Receipt Date: 20080310
  Transmission Date: 20080703
  Serious: Yes (Other)
  Sender: FDA-Public Use
  Company Number: 310022J08USA

PATIENT
  Age: 21 Week
  Sex: 0

DRUGS (1)
  1. GONAL-F [Suspect]
     Indication: INFERTILITY
     Dosage: TRANSPLACENTAL
     Route: 064

REACTIONS (2)
  - DRUG EXPOSURE DURING PREGNANCY [None]
  - INTRA-UTERINE DEATH [None]
